FAERS Safety Report 9422004 (Version 3)
Quarter: 2013Q3

REPORT INFORMATION
  Report Type: Report from Study
  Country: CA (occurrence: CA)
  Receive Date: 20130726
  Receipt Date: 20130912
  Transmission Date: 20140515
  Serious: Yes (Hospitalization)
  Sender: FDA-Public Use
  Company Number: CA-JNJFOC-20130711703

PATIENT
  Sex: Female
  Weight: 52 kg

DRUGS (9)
  1. REMICADE [Suspect]
     Indication: COLITIS ULCERATIVE
     Dosage: DOSE: 10 MG/KG
     Route: 042
     Dates: start: 20130801
  2. REMICADE [Suspect]
     Indication: COLITIS ULCERATIVE
     Route: 042
     Dates: start: 20130228
  3. REMICADE [Suspect]
     Indication: COLITIS ULCERATIVE
     Route: 042
     Dates: start: 201304
  4. FLAGYL [Concomitant]
     Route: 065
  5. CIPRO [Concomitant]
     Route: 065
  6. CALCIUM [Concomitant]
     Route: 065
  7. VITAMIN D [Concomitant]
     Route: 065
  8. PROFERRIN [Concomitant]
     Route: 065
  9. MINOCYCLIN [Concomitant]
     Route: 065

REACTIONS (4)
  - Unevaluable event [Recovering/Resolving]
  - Condition aggravated [Recovering/Resolving]
  - Blood iron decreased [Recovering/Resolving]
  - Drug level decreased [Unknown]
